FAERS Safety Report 25434447 (Version 1)
Quarter: 2025Q2

REPORT INFORMATION
  Report Type: Report from Study
  Country: IN (occurrence: IN)
  Receive Date: 20250613
  Receipt Date: 20250613
  Transmission Date: 20250716
  Serious: Yes (Hospitalization, Other)
  Sender: NOVARTIS
  Company Number: IN-002147023-NVSC2021IN162714

PATIENT
  Age: 59 Year
  Sex: Female

DRUGS (3)
  1. MYFORTIC [Suspect]
     Active Substance: MYCOPHENOLATE SODIUM
     Indication: Renal transplant
     Dosage: 360 MG, BID
     Route: 048
     Dates: start: 20170118
  2. CYCLOSPORINE [Suspect]
     Active Substance: CYCLOSPORINE
     Indication: Renal transplant
     Dosage: 75 MG, BID
     Route: 048
     Dates: start: 20170118
  3. CYCLOSPORINE [Suspect]
     Active Substance: CYCLOSPORINE
     Dosage: 50 MG, BID
     Route: 048

REACTIONS (20)
  - H1N1 influenza [Not Recovered/Not Resolved]
  - Gastric infection [Unknown]
  - Diarrhoea [Unknown]
  - Dyspnoea [Unknown]
  - Viral infection [Unknown]
  - Pyrexia [Unknown]
  - Weight decreased [Unknown]
  - Dehydration [Unknown]
  - Hypoglycaemia [Unknown]
  - Asthenia [Unknown]
  - Flatulence [Unknown]
  - Decreased appetite [Unknown]
  - Abdominal pain lower [Unknown]
  - Balance disorder [Unknown]
  - Rash [Unknown]
  - Constipation [Unknown]
  - Hypertension [Unknown]
  - Oedema peripheral [Unknown]
  - Urine output decreased [Unknown]
  - Product prescribing error [Unknown]

NARRATIVE: CASE EVENT DATE: 20210707
